FAERS Safety Report 7611892-7 (Version None)
Quarter: 2011Q3

REPORT INFORMATION
  Report Type: 
  Country: None (occurrence: None)
  Receive Date: 20110715
  Receipt Date: 20110708
  Transmission Date: 20111222
  Serious: Yes (Hospitalization, Other)
  Sender: FDA-Public Use
  Company Number: US-PURDUE-USA-2011-0071131

PATIENT
  Sex: Female

DRUGS (4)
  1. METHADONE HCL [Concomitant]
     Indication: PAIN
     Dosage: UNK UNK, TID
     Route: 048
  2. SOMA [Concomitant]
     Indication: PAIN
     Dosage: UNK UNK, QID
  3. BUTRANS [Suspect]
     Indication: PAIN
     Dosage: 5 MCG, Q1H
     Route: 062
     Dates: start: 20110317, end: 20110317
  4. MS CONTIN [Suspect]
     Indication: PAIN
     Dosage: 15 MG, BID
     Route: 048

REACTIONS (3)
  - DIZZINESS [None]
  - FALL [None]
  - ANKLE FRACTURE [None]
